FAERS Safety Report 6958664-4 (Version None)
Quarter: 2010Q3

REPORT INFORMATION
  Report Type: 
  Country: None (occurrence: None)
  Receive Date: 20100830
  Receipt Date: 20100830
  Transmission Date: 20110219
  Serious: Yes (Other)
  Sender: FDA-Public Use
  Company Number: None

PATIENT
  Age: 50 Year
  Sex: Female
  Weight: 96.5 kg

DRUGS (3)
  1. GEMCITABINE [Suspect]
     Indication: OVARIAN CANCER
     Dosage: 1000MG/M2 D1 + D15 Q28DAYS IV
     Route: 042
     Dates: start: 20100119, end: 20100817
  2. CARBOPLATIN [Suspect]
     Indication: OVARIAN CANCER
     Dosage: AUC-3 D1 + D15 Q28DAYS IC
     Dates: start: 20100119, end: 20100817
  3. BEVACIZUMAB [Concomitant]

REACTIONS (1)
  - NEUTROPHIL COUNT DECREASED [None]
